FAERS Safety Report 4895812-4 (Version None)
Quarter: 2006Q1

REPORT INFORMATION
  Report Type: 
  Country: None (occurrence: None)
  Receive Date: 20060130
  Receipt Date: 20060120
  Transmission Date: 20060701
  Serious: Yes (Hospitalization)
  Sender: FDA-Public Use
  Company Number: FR-ABBOTT-06P-056-0322993-00

PATIENT
  Age: 57 Year
  Sex: Male

DRUGS (4)
  1. FENOFIBRATE [Suspect]
     Indication: TYPE IIB HYPERLIPIDAEMIA
  2. ATORVASTATIN CALCIUM [Suspect]
     Indication: DRUG USE FOR UNKNOWN INDICATION
     Dates: start: 20000701
  3. INFLUENZA VACCINE [Suspect]
     Indication: DRUG USE FOR UNKNOWN INDICATION
     Dates: start: 20001001, end: 20001001
  4. INFLUENZA VACCINE [Suspect]
     Dates: start: 20021001, end: 20021001

REACTIONS (6)
  - BECKER'S MUSCULAR DYSTROPHY [None]
  - BLOOD CREATINE PHOSPHOKINASE INCREASED [None]
  - MITRAL VALVE INCOMPETENCE [None]
  - MYALGIA [None]
  - MYOPATHY TOXIC [None]
  - MYOSITIS [None]
